FAERS Safety Report 4382510-9 (Version None)
Quarter: 2004Q2

REPORT INFORMATION
  Report Type: 
  Country: None (occurrence: None)
  Receive Date: 20040617
  Receipt Date: 20040607
  Transmission Date: 20050107
  Serious: Yes (Other)
  Sender: FDA-Public Use
  Company Number: 2004037841

PATIENT
  Age: 53 Year
  Sex: Male

DRUGS (2)
  1. DOXAZOSIN MESLYLATE [Suspect]
     Indication: HYPERTENSION
     Dosage: 4 MG (4 MG, 1 IN 1 D), ORAL
     Route: 048
     Dates: start: 20010101
  2. SILDENAFIL CITRATE (SILDENAFIL CITRATE) [Concomitant]

REACTIONS (5)
  - ADRENAL DISORDER [None]
  - EYELID OEDEMA [None]
  - HYPERTENSIVE CRISIS [None]
  - OEDEMA PERIPHERAL [None]
  - RENAL DISORDER [None]
